FAERS Safety Report 8313999-8 (Version None)
Quarter: 2012Q2

REPORT INFORMATION
  Report Type: 
  Country: None (occurrence: None)
  Receive Date: 20120426
  Receipt Date: 20120419
  Transmission Date: 20120825
  Serious: Yes (Hospitalization, Other)
  Sender: FDA-Public Use
  Company Number: US-ASTRAZENECA-2011SE71226

PATIENT
  Age: 46 Year
  Sex: Female

DRUGS (2)
  1. SEROQUEL [Suspect]
     Indication: BIPOLAR DISORDER
     Route: 048
  2. SEROQUEL [Suspect]
     Route: 048

REACTIONS (7)
  - ADVERSE DRUG REACTION [None]
  - MALAISE [None]
  - VOMITING [None]
  - SYNCOPE [None]
  - DRUG DISPENSING ERROR [None]
  - INTENTIONAL DRUG MISUSE [None]
  - FEELING ABNORMAL [None]
